FAERS Safety Report 18419119 (Version 3)
Quarter: 2021Q3

REPORT INFORMATION
  Report Type: Report from Study
  Country: CO (occurrence: CO)
  Receive Date: 20201023
  Receipt Date: 20210927
  Transmission Date: 20211014
  Serious: Yes (Death, Hospitalization, Other)
  Sender: FDA-Public Use
  Company Number: NVSC2020CO164250

PATIENT
  Age: 45 Year
  Sex: Female

DRUGS (2)
  1. FEMARA [Suspect]
     Active Substance: LETROZOLE
     Indication: BREAST CANCER
     Dosage: 2.5 MG, QD
     Route: 048
     Dates: end: 202010
  2. KISQALI [Suspect]
     Active Substance: RIBOCICLIB
     Indication: BREAST CANCER METASTATIC
     Dosage: 600 MG, QD
     Route: 048
     Dates: end: 202010

REACTIONS (21)
  - Metastases to pharynx [Unknown]
  - Gastritis [Unknown]
  - Drug ineffective [Unknown]
  - Dizziness [Unknown]
  - Metastases to liver [Unknown]
  - Insomnia [Unknown]
  - Dyspnoea [Unknown]
  - Yellow skin [Unknown]
  - Weight decreased [Unknown]
  - Vomiting [Unknown]
  - Headache [Unknown]
  - Malaise [Unknown]
  - Breast cancer metastatic [Unknown]
  - Malignant neoplasm progression [Unknown]
  - Hypotension [Unknown]
  - Death [Fatal]
  - Drug intolerance [Unknown]
  - Abdominal discomfort [Unknown]
  - Metastases to lung [Unknown]
  - Heart rate decreased [Unknown]
  - Dyskinesia [Unknown]

NARRATIVE: CASE EVENT DATE: 20201114
